FAERS Safety Report 8460362-5 (Version None)
Quarter: 2012Q2

REPORT INFORMATION
  Report Type: 
  Country: None (occurrence: None)
  Receive Date: 20120323
  Receipt Date: 20111128
  Transmission Date: 20120825
  Serious: Yes (Other)
  Sender: FDA-Public Use
  Company Number: 163-21880-11093270

PATIENT
  Age: 89 Year
  Sex: Female

DRUGS (20)
  1. AYR SALINE NASAL (SODIUM CHLORIDE) [Concomitant]
  2. ACETAMINOPHEN [Concomitant]
  3. ZOFRAN [Concomitant]
  4. FLONASE [Concomitant]
  5. DIPROLENE AF (BETAMETHASONE DIPROPIONATE) [Concomitant]
  6. REVLIMID [Suspect]
     Indication: MULTIPLE MYELOMA
     Dosage: 5 MG, EVERY OTHER DAY FOR 3 WEEKS 1 WEEK OFF, PO
     Route: 048
     Dates: start: 20110921
  7. COUMADIN [Concomitant]
  8. SYNTHROID [Concomitant]
  9. ZANTAC 75 [Concomitant]
  10. ISOSORBIDE MONONITRATE CR (ISOSORBIDE MONONITRATE) [Concomitant]
  11. CALCIUM CARBONATE [Concomitant]
  12. PROCHLORPERAZINE MALEATE (PROCHLORPERAZINE MALEATE) [Concomitant]
  13. ATENOLOL [Concomitant]
  14. CLONIDINE HCL (CLONIDINE HYDROCHLORIDE) [Concomitant]
  15. CENTRUM SILVER (CENTRUM SILVER) [Concomitant]
  16. AMLODIPINE BESYLATE 9AMLODIPINE BESILATE) [Concomitant]
  17. DEXAMETHASONE [Concomitant]
  18. CYCLOBENZAPRINE HCL (CYCLOBENZAPRINE) [Concomitant]
  19. HYDRALAZINE HCL [Concomitant]
  20. FLOVENT [Concomitant]

REACTIONS (3)
  - OEDEMA PERIPHERAL [None]
  - PRURITUS [None]
  - DEEP VEIN THROMBOSIS [None]
